FAERS Safety Report 16070902 (Version 1)
Quarter: 2019Q1

REPORT INFORMATION
  Report Type: Spontaneous
  Country: CN (occurrence: CN)
  Receive Date: 20190314
  Receipt Date: 20190314
  Transmission Date: 20190418
  Serious: Yes (Other)
  Sender: FDA-Public Use
  Company Number: CN-ROCHE-2281161

PATIENT
  Age: 68 Year
  Sex: Male
  Weight: 50 kg

DRUGS (2)
  1. SODIUM CHLORIDE. [Concomitant]
     Active Substance: SODIUM CHLORIDE
     Route: 042
     Dates: start: 20181212, end: 20181212
  2. MABTHERA [Suspect]
     Active Substance: RITUXIMAB
     Indication: DIFFUSE LARGE B-CELL LYMPHOMA
     Route: 042
     Dates: start: 20181212, end: 20181212

REACTIONS (6)
  - Hepatic function abnormal [Not Recovered/Not Resolved]
  - Temperature intolerance [Unknown]
  - Arrhythmia [Not Recovered/Not Resolved]
  - Renal impairment [Not Recovered/Not Resolved]
  - Chills [Unknown]
  - Blood pressure decreased [Unknown]

NARRATIVE: CASE EVENT DATE: 20181212
